FAERS Safety Report 5255122-2 (Version None)
Quarter: 2007Q1

REPORT INFORMATION
  Report Type: 
  Country: None (occurrence: None)
  Receive Date: 20070228
  Receipt Date: 20070216
  Transmission Date: 20070707
  Serious: Yes (Hospitalization)
  Sender: FDA-Public Use
  Company Number: TPA2007A00324

PATIENT
  Sex: Male

DRUGS (1)
  1. DUETACT [Suspect]
     Indication: BLOOD GLUCOSE INCREASED
     Dosage: PER ORAL
     Route: 048

REACTIONS (2)
  - CHEST PAIN [None]
  - DYSPNOEA [None]
